FAERS Safety Report 22536297 (Version 4)
Quarter: 2025Q1

REPORT INFORMATION
  Report Type: Spontaneous
  Country: US (occurrence: US)
  Receive Date: 20230608
  Receipt Date: 20250211
  Transmission Date: 20250409
  Serious: No
  Sender: PFIZER
  Company Number: US-PFIZER INC-2021130871

PATIENT
  Age: 85 Year
  Sex: Female

DRUGS (1)
  1. IBRANCE [Suspect]
     Active Substance: PALBOCICLIB
     Indication: Metastatic neoplasm
     Route: 048

REACTIONS (4)
  - Stomatitis [Unknown]
  - Fatigue [Unknown]
  - Drug hypersensitivity [Unknown]
  - Product dispensing error [Unknown]
